FAERS Safety Report 8737543 (Version 2)
Quarter: 2012Q4

REPORT INFORMATION
  Report Type: 
  Country: VN (occurrence: VN)
  Receive Date: 20120822
  Receipt Date: 20120906
  Transmission Date: 20130627
  Serious: Yes (Hospitalization)
  Sender: FDA-Public Use
  Company Number: VN-BAXTER-2012BAX014834

PATIENT
  Age: 38 Year
  Sex: Female

DRUGS (1)
  1. DIANEAL LOW CALCIUM (2,5MEQ.L) PERITIONEAL DIALYSIS SOLUTION WITH 1.5% [Suspect]
     Indication: CONTINUOUS AMBULATORY PERITONEAL DIALYSIS
     Dosage: 4
     Route: 033
     Dates: start: 20120615

REACTIONS (2)
  - Pyrexia [Recovered/Resolved]
  - Peritonitis [Recovered/Resolved]
